FAERS Safety Report 9684133 (Version 1)
Quarter: 2013Q4

REPORT INFORMATION
  Report Type: Spontaneous
  Country: US (occurrence: US)
  Receive Date: 20131112
  Receipt Date: 20131112
  Transmission Date: 20140711
  Serious: Yes (Hospitalization, Other)
  Sender: FDA-Public Use
  Company Number: US-ACTAVIS-2013-20106

PATIENT
  Sex: 0

DRUGS (2)
  1. DIVALPROEX SODIUM DR (WATSON LABORATORIES) [Suspect]
     Indication: CONVULSION
     Dosage: 500 MG, BID
     Route: 065
     Dates: start: 2013, end: 2013
  2. DIVALPROEX SODIUM DR (WATSON LABORATORIES) [Suspect]
     Dosage: 500 MG, BID
     Route: 048
     Dates: start: 2011, end: 201307

REACTIONS (10)
  - Diabetes mellitus [Unknown]
  - Tremor [Recovered/Resolved]
  - Disorientation [Recovered/Resolved]
  - Dizziness [Recovered/Resolved]
  - Abdominal discomfort [Recovered/Resolved]
  - Chromaturia [Recovered/Resolved]
  - Abdominal pain [Recovered/Resolved]
  - Blood glucose increased [Unknown]
  - Incorrect drug administration duration [Unknown]
  - Overdose [Unknown]
